FAERS Safety Report 8421675-6 (Version None)
Quarter: 2012Q2

REPORT INFORMATION
  Report Type: 
  Country: None (occurrence: None)
  Receive Date: 20120608
  Receipt Date: 20120601
  Transmission Date: 20120825
  Serious: Yes (Hospitalization, Other)
  Sender: FDA-Public Use
  Company Number: US-ABBOTT-12P-163-0931869-00

PATIENT
  Sex: Female
  Weight: 49.94 kg

DRUGS (6)
  1. HUMIRA [Suspect]
     Dates: start: 20120423
  2. SYNTHROID [Concomitant]
     Indication: HYPOTHYROIDISM
  3. MULTI-VITAMIN [Concomitant]
     Indication: VITAMIN SUPPLEMENTATION
  4. CALCIUM [Concomitant]
     Indication: MINERAL SUPPLEMENTATION
  5. HUMIRA [Suspect]
     Indication: CROHN'S DISEASE
     Route: 058
     Dates: start: 20110822, end: 20111201
  6. HUMIRA [Suspect]
     Route: 058
     Dates: start: 20111201, end: 20120212

REACTIONS (5)
  - ABDOMINAL PAIN [None]
  - MYALGIA [None]
  - INJECTION SITE ERYTHEMA [None]
  - UTERINE LEIOMYOMA [None]
  - CROHN'S DISEASE [None]
